FAERS Safety Report 4870585-X (Version None)
Quarter: 2006Q1

REPORT INFORMATION
  Report Type: 
  Country: None (occurrence: None)
  Receive Date: 20060103
  Receipt Date: 20050816
  Transmission Date: 20060701
  Serious: Yes (Hospitalization)
  Sender: FDA-Public Use
  Company Number: AU-BRISTOL-MYERS SQUIBB COMPANY-13080130

PATIENT
  Age: 56 Year
  Sex: Male

DRUGS (3)
  1. ATAZANAVIR [Suspect]
     Route: 048
     Dates: start: 20050201
  2. RITONAVIR [Concomitant]
     Route: 048
  3. COMBIVIR [Concomitant]
     Route: 048

REACTIONS (4)
  - DIABETES MELLITUS [None]
  - DRUG INEFFECTIVE [None]
  - TREATMENT NONCOMPLIANCE [None]
  - WEIGHT DECREASED [None]
